FAERS Safety Report 8155406-4 (Version None)
Quarter: 2012Q1

REPORT INFORMATION
  Report Type: 
  Country: None (occurrence: None)
  Receive Date: 20120222
  Receipt Date: 20120214
  Transmission Date: 20120608
  Serious: Yes (Hospitalization, Other)
  Sender: FDA-Public Use
  Company Number: DE-ACCORD-012342

PATIENT
  Age: 47 Year
  Sex: Female

DRUGS (4)
  1. CORTICOSTEROIDS [Suspect]
     Indication: IMMUNOSUPPRESSION
  2. MYCOPHENOLATE MOFETIL [Suspect]
     Indication: IMMUNOSUPPRESSION
  3. TACROLIMUS [Suspect]
     Indication: IMMUNOSUPPRESSION
  4. CYCLOSPORINE [Suspect]
     Indication: IMMUNOSUPPRESSION

REACTIONS (1)
  - CHRONIC MYELOID LEUKAEMIA [None]
